FAERS Safety Report 18415302 (Version 1)
Quarter: 2020Q4

REPORT INFORMATION
  Report Type: Spontaneous
  Country: GB (occurrence: GB)
  Receive Date: 20201022
  Receipt Date: 20201022
  Transmission Date: 20210114
  Serious: Yes (Other)
  Sender: FDA-Public Use
  Company Number: GB-TEVA-2020-GB-1840157

PATIENT
  Age: 19 Year
  Sex: Male
  Weight: 58 kg

DRUGS (5)
  1. DULOXETINE HYDROCHLORIDE. [Concomitant]
     Active Substance: DULOXETINE HYDROCHLORIDE
  2. QUETIAPINE. [Concomitant]
     Active Substance: QUETIAPINE
  3. TINIDAZOLE. [Suspect]
     Active Substance: TINIDAZOLE
     Indication: LYME DISEASE
     Dosage: 1000MILLIGRAM
     Route: 048
     Dates: start: 20200915, end: 20200916
  4. FLUCONAZOLE. [Suspect]
     Active Substance: FLUCONAZOLE
     Indication: LYME DISEASE
     Dosage: 100MILLIGRAM
     Route: 048
  5. LAMOTRIGINE. [Concomitant]
     Active Substance: LAMOTRIGINE

REACTIONS (4)
  - Musculoskeletal stiffness [Unknown]
  - Dystonia [Recovered/Resolved]
  - Tremor [Unknown]
  - Tachycardia [Recovered/Resolved]

NARRATIVE: CASE EVENT DATE: 20200916
